FAERS Safety Report 24066329 (Version 2)
Quarter: 2024Q3

REPORT INFORMATION
  Report Type: Spontaneous
  Country: IT (occurrence: IT)
  Receive Date: 20240709
  Receipt Date: 20240711
  Transmission Date: 20241017
  Serious: Yes (Death, Other)
  Sender: BAXTER
  Company Number: IT-BAXTER-2024BAX020963

PATIENT
  Age: 64 Year
  Sex: Male

DRUGS (3)
  1. PROPOFOL [Suspect]
     Active Substance: PROPOFOL
     Indication: Sedative therapy
     Dosage: PROPOFOL LEVELS UP TO 3.6 MG/KG/H EXTENDED DURING THE ENTIRE DURATION OF HOSPITALIZATION.
     Route: 065
  2. VALPROIC ACID [Concomitant]
     Active Substance: VALPROIC ACID
     Indication: Generalised tonic-clonic seizure
     Route: 065
  3. VALPROIC ACID [Concomitant]
     Active Substance: VALPROIC ACID
     Indication: Sedative therapy
     Dosage: WITH DOSE ADJUSTED BASED ON SERIAL MONITORING OF VALPROATE LEVELS
     Route: 065

REACTIONS (11)
  - Propofol infusion syndrome [Fatal]
  - Hypertension [Fatal]
  - Haemodynamic instability [Fatal]
  - General physical health deterioration [Fatal]
  - Ventricular tachycardia [Fatal]
  - Cardiac arrest [Fatal]
  - Atrial fibrillation [Fatal]
  - Electrocardiogram QRS complex prolonged [Fatal]
  - Electrocardiogram abnormal [Fatal]
  - Electrocardiogram repolarisation abnormality [Fatal]
  - Hypotension [Fatal]
